FAERS Safety Report 5506425-5 (Version None)
Quarter: 2007Q4

REPORT INFORMATION
  Report Type: 
  Country: None (occurrence: None)
  Receive Date: 20071105
  Receipt Date: 20071105
  Transmission Date: 20080405
  Serious: Yes (Disabling)
  Sender: FDA-Public Use
  Company Number: A0691370A

PATIENT
  Age: 30 Year
  Sex: Female
  Weight: 73.6 kg

DRUGS (2)
  1. ALLI [Suspect]
     Dates: start: 20071022, end: 20071102
  2. ZOLOFT [Concomitant]

REACTIONS (1)
  - COITAL BLEEDING [None]
